FAERS Safety Report 15427291 (Version 2)
Quarter: 2018Q4

REPORT INFORMATION
  Report Type: Spontaneous
  Country: US (occurrence: US)
  Receive Date: 20180925
  Receipt Date: 20181030
  Transmission Date: 20190204
  Serious: Yes (Other)
  Sender: FDA-Public Use
  Company Number: US-GE HEALTHCARE LIFE SCIENCES-2018CSU003771

PATIENT
  Age: 89 Year
  Sex: Male
  Weight: 68 kg

DRUGS (12)
  1. IBUPROFEN. [Concomitant]
     Active Substance: IBUPROFEN
     Dosage: UNK
     Dates: start: 20180122, end: 20180911
  2. TRAZODONE [Concomitant]
     Active Substance: TRAZODONE HYDROCHLORIDE
     Dosage: UNK
     Dates: start: 20131002
  3. CALCIUM CARBONATE- VITAMIN D12 [Concomitant]
     Dosage: UNK, QD
     Dates: start: 20060424
  4. LIDOCAINE. [Concomitant]
     Active Substance: LIDOCAINE
     Indication: ARTHRALGIA
     Dosage: UNK
     Route: 061
     Dates: start: 20180412
  5. MAGNESIUM OXIDE. [Concomitant]
     Active Substance: MAGNESIUM OXIDE
     Dosage: UNK
     Dates: start: 20140206, end: 20180905
  6. LISINOPRIL. [Concomitant]
     Active Substance: LISINOPRIL
     Dosage: UNK
     Dates: start: 20180511
  7. MELATONIN [Concomitant]
     Active Substance: MELATONIN
     Dosage: UNK
     Dates: start: 20120706
  8. OMNIPAQUE [Suspect]
     Active Substance: IOHEXOL
     Indication: PAIN IN EXTREMITY
     Dosage: 125 ML, SINGLE
     Route: 042
     Dates: start: 20180730, end: 20180730
  9. CITALOPRAM [Concomitant]
     Active Substance: CITALOPRAM HYDROBROMIDE
     Indication: DEPRESSION
     Dosage: UNK
     Dates: start: 20121017
  10. ACETAMINOPHEN. [Concomitant]
     Active Substance: ACETAMINOPHEN
     Dosage: UNK, PRN
     Dates: start: 20180713
  11. GABAPENTIN. [Concomitant]
     Active Substance: GABAPENTIN
     Indication: PAIN
     Dosage: UNK
     Dates: start: 20120307
  12. COSAMIN DS                         /07182401/ [Concomitant]
     Dosage: UNK
     Dates: start: 20120801, end: 20180911

REACTIONS (1)
  - Contrast media reaction [Recovering/Resolving]

NARRATIVE: CASE EVENT DATE: 20180730
